FAERS Safety Report 5961261-0 (Version None)
Quarter: 2008Q4

REPORT INFORMATION
  Report Type: 
  Country: None (occurrence: None)
  Receive Date: 20081119
  Receipt Date: 20081107
  Transmission Date: 20090506
  Serious: Yes (Other)
  Sender: FDA-Public Use
  Company Number: 08P-167-0486685-00

PATIENT
  Sex: Female

DRUGS (1)
  1. SYNAGIS [Suspect]
     Dosage: (15 MG/KG)
     Dates: start: 20081031

REACTIONS (4)
  - ABNORMAL FAECES [None]
  - DIARRHOEA [None]
  - MALAISE [None]
  - WHEEZING [None]
